FAERS Safety Report 9504146 (Version 1)
Quarter: 2013Q3

REPORT INFORMATION
  Report Type: Spontaneous
  Country: US (occurrence: US)
  Receive Date: 20130906
  Receipt Date: 20130906
  Transmission Date: 20140515
  Serious: Yes (Other)
  Sender: FDA-Public Use
  Company Number: US-BAYER-2013-106497

PATIENT
  Sex: Male

DRUGS (1)
  1. BETASERON [Suspect]
     Dosage: 0.25 MG, QOD
     Route: 058
     Dates: start: 20121201, end: 20130828

REACTIONS (12)
  - Disorientation [None]
  - Vertigo [None]
  - Abdominal pain upper [None]
  - Nausea [None]
  - Disorientation [None]
  - Disorientation [None]
  - Vertigo [None]
  - Vertigo [None]
  - Abdominal pain upper [None]
  - Abdominal pain upper [None]
  - Nausea [None]
  - Nausea [None]
